FAERS Safety Report 5252993-0 (Version None)
Quarter: 2007Q1

REPORT INFORMATION
  Report Type: 
  Country: None (occurrence: None)
  Receive Date: 20070227
  Receipt Date: 20070207
  Transmission Date: 20070707
  Serious: Yes (Other)
  Sender: FDA-Public Use
  Company Number: 15656

PATIENT
  Sex: Male
  Weight: 68 kg

DRUGS (2)
  1. ATRACURIUM BESYLATE [Suspect]
     Indication: PARALYSIS
     Dosage: 25 MG FREQ IV
     Route: 042
  2. ATRACURIUM BESYLATE [Suspect]

REACTIONS (2)
  - DRUG INEFFECTIVE [None]
  - PHARMACEUTICAL PRODUCT COMPLAINT [None]
